FAERS Safety Report 4757960-9 (Version None)
Quarter: 2005Q3

REPORT INFORMATION
  Report Type: 
  Country: None (occurrence: None)
  Receive Date: 20050830
  Receipt Date: 20050824
  Transmission Date: 20060218
  Serious: No
  Sender: FDA-Public Use
  Company Number: 2005119029

PATIENT

DRUGS (2)
  1. BEXTRA [Suspect]
     Indication: ILL-DEFINED DISORDER
  2. ARTHROTEC [Suspect]
     Indication: ILL-DEFINED DISORDER

REACTIONS (1)
  - PEPTIC ULCER [None]
